FAERS Safety Report 16703278 (Version 1)
Quarter: 2019Q3

REPORT INFORMATION
  Report Type: Spontaneous
  Country: US (occurrence: US)
  Receive Date: 20190628
  Receipt Date: 20190628
  Transmission Date: 20191004
  Serious: No
  Sender: FDA-Public Use
  Company Number: None

PATIENT
  Age: 65 Year
  Sex: Female

DRUGS (4)
  1. COSENTYX [Suspect]
     Active Substance: SECUKINUMAB
     Indication: PSORIATIC ARTHROPATHY
     Dates: start: 201806
  2. ATORVASTATIN [Concomitant]
     Active Substance: ATORVASTATIN
  3. KETOCONAZOLE. [Concomitant]
     Active Substance: KETOCONAZOLE
  4. TACROLIMUS. [Concomitant]
     Active Substance: TACROLIMUS

REACTIONS (3)
  - Tongue fungal infection [None]
  - Diarrhoea [None]
  - Tongue ulceration [None]

NARRATIVE: CASE EVENT DATE: 20190605
